FAERS Safety Report 8043745-7 (Version None)
Quarter: 2012Q1

REPORT INFORMATION
  Report Type: 
  Country: None (occurrence: None)
  Receive Date: 20120113
  Receipt Date: 20120103
  Transmission Date: 20120608
  Serious: Yes (Hospitalization)
  Sender: FDA-Public Use
  Company Number: US-BIOGENIDEC-2011BI047265

PATIENT
  Age: 24 Year
  Sex: Female

DRUGS (2)
  1. UNKNOWN ANXIETY MEDICATION [Concomitant]
     Indication: DEPRESSION
  2. AVONEX [Suspect]
     Indication: MULTIPLE SCLEROSIS
     Route: 030
     Dates: start: 20090213

REACTIONS (1)
  - BRAIN OEDEMA [None]
